FAERS Safety Report 18018475 (Version 1)
Quarter: 2020Q3

REPORT INFORMATION
  Report Type: Spontaneous
  Country: US (occurrence: US)
  Receive Date: 20200713
  Receipt Date: 20200713
  Transmission Date: 20201103
  Serious: No
  Sender: FDA-Public Use
  Company Number: None

PATIENT
  Age: 28 Year
  Sex: Female

DRUGS (2)
  1. HUMIRA [Suspect]
     Active Substance: ADALIMUMAB
     Indication: UVEITIS
     Dosage: ?          OTHER FREQUENCY:EVERY2WEEKSASDIR;?
     Route: 058
     Dates: start: 202003
  2. HUMIRA [Suspect]
     Active Substance: ADALIMUMAB
     Indication: CHORIORETINAL DISORDER
     Dosage: ?          OTHER FREQUENCY:EVERY2WEEKSASDIR;?
     Route: 058
     Dates: start: 202003

REACTIONS (1)
  - Nasopharyngitis [None]
